FAERS Safety Report 19010388 (Version 1)
Quarter: 2021Q1

REPORT INFORMATION
  Report Type: Spontaneous
  Country: FR (occurrence: FR)
  Receive Date: 20210316
  Receipt Date: 20210316
  Transmission Date: 20210420
  Serious: Yes (Other)
  Sender: FDA-Public Use
  Company Number: FR-MACLEODS PHARMACEUTICALS US LTD-MAC2021030445

PATIENT

DRUGS (4)
  1. RITONAVIR. [Interacting]
     Active Substance: RITONAVIR
     Indication: HIV INFECTION
     Dosage: UNK
     Route: 065
     Dates: start: 2013
  2. EMTRICITABINE, TENOFOVIR [Concomitant]
     Active Substance: EMTRICITABINE\TENOFOVIR
     Indication: HIV INFECTION
     Dosage: UNK
     Route: 065
     Dates: start: 2013
  3. TRIAMCINOLONE ACETONIDE. [Suspect]
     Active Substance: TRIAMCINOLONE ACETONIDE
     Indication: EPICONDYLITIS
     Dosage: UNK, ELBOW, INJECTION
     Route: 065
     Dates: start: 201910
  4. DARUNAVIR [Concomitant]
     Active Substance: DARUNAVIR
     Indication: HIV INFECTION
     Dosage: UNK
     Route: 065
     Dates: start: 2013

REACTIONS (4)
  - Hyperadrenocorticism [Recovered/Resolved]
  - Disease recurrence [Recovering/Resolving]
  - Drug interaction [Recovering/Resolving]
  - Kaposi^s sarcoma [Recovering/Resolving]

NARRATIVE: CASE EVENT DATE: 201912
